FAERS Safety Report 7227877-9 (Version None)
Quarter: 2011Q1

REPORT INFORMATION
  Report Type: 
  Country: None (occurrence: None)
  Receive Date: 20110114
  Receipt Date: 20110107
  Transmission Date: 20110831
  Serious: Yes (Hospitalization)
  Sender: FDA-Public Use
  Company Number: FR-MERCK-0909FRA00050

PATIENT
  Age: 61 Year
  Sex: Male

DRUGS (22)
  1. METOPROLOL TARTRATE [Concomitant]
     Route: 048
     Dates: start: 20080801, end: 20090217
  2. LEVOCETIRIZINE DIHYDROCHLORIDE [Concomitant]
     Route: 065
     Dates: end: 20080724
  3. VALACYCLOVIR HYDROCHLORIDE [Concomitant]
     Route: 065
     Dates: end: 20080724
  4. ALLOPURINOL [Suspect]
     Route: 048
     Dates: start: 20081223, end: 20090217
  5. PYGEUM [Concomitant]
     Route: 048
     Dates: end: 20080724
  6. METOPROLOL TARTRATE [Concomitant]
     Route: 048
     Dates: start: 20090301
  7. CLOPIDOGREL BISULFATE [Concomitant]
     Route: 048
     Dates: end: 20080724
  8. TRIMETAZIDINE HYDROCHLORIDE [Concomitant]
     Route: 048
     Dates: start: 20080801, end: 20090217
  9. PYGEUM [Concomitant]
     Route: 048
     Dates: start: 20081223, end: 20090217
  10. PYGEUM [Concomitant]
     Route: 048
     Dates: start: 20090301
  11. SAW PALMETTO [Concomitant]
     Route: 048
     Dates: end: 20080724
  12. SAW PALMETTO [Concomitant]
     Route: 048
     Dates: start: 20081223, end: 20090217
  13. SAW PALMETTO [Concomitant]
     Route: 048
     Dates: start: 20090301
  14. ZETIA [Suspect]
     Route: 048
     Dates: start: 20050101, end: 20080724
  15. CLOPIDOGREL BISULFATE [Concomitant]
     Route: 048
     Dates: start: 20080801, end: 20090217
  16. METOPROLOL TARTRATE [Concomitant]
     Route: 048
     Dates: end: 20080724
  17. ALLOPURINOL [Suspect]
     Route: 048
     Dates: start: 20090601, end: 20090706
  18. TRIMETAZIDINE HYDROCHLORIDE [Concomitant]
     Route: 048
     Dates: end: 20080724
  19. ZETIA [Suspect]
     Route: 048
     Dates: start: 20081223, end: 20090217
  20. CLOPIDOGREL BISULFATE [Concomitant]
     Route: 048
     Dates: start: 20090301
  21. ALLOPURINOL [Suspect]
     Route: 048
     Dates: start: 20050101, end: 20080724
  22. TRIMETAZIDINE HYDROCHLORIDE [Concomitant]
     Route: 048
     Dates: start: 20090223

REACTIONS (2)
  - THROMBOCYTOPENIA [None]
  - PURPURA [None]
